FAERS Safety Report 7279774-0 (Version None)
Quarter: 2011Q1

REPORT INFORMATION
  Report Type: 
  Country: None (occurrence: None)
  Receive Date: 20110203
  Receipt Date: 20110203
  Transmission Date: 20110831
  Serious: Yes (Other)
  Sender: FDA-Public Use
  Company Number: None

PATIENT
  Age: 60 Year
  Sex: Female
  Weight: 61.2356 kg

DRUGS (2)
  1. EFFEXOR [Suspect]
     Indication: DEPRESSION
     Dosage: 12MG 12 HOURS PO
     Route: 048
  2. ULTRAM [Suspect]
     Indication: BLADDER PAIN
     Dosage: 50MG 4 TO 6 HOURS PO
     Route: 048

REACTIONS (10)
  - WITHDRAWAL SYNDROME [None]
  - DEPRESSION [None]
  - CYSTITIS INTERSTITIAL [None]
  - DISCOMFORT [None]
  - DIZZINESS [None]
  - MENTAL DISORDER [None]
  - BACK PAIN [None]
  - ABDOMINAL DISTENSION [None]
  - PAIN [None]
  - FEELING ABNORMAL [None]
